FAERS Safety Report 24325787 (Version 4)
Quarter: 2025Q1

REPORT INFORMATION
  Report Type: Other
  Country: CA (occurrence: CA)
  Receive Date: 20240917
  Receipt Date: 20250220
  Transmission Date: 20250408
  Serious: Yes (Other)
  Sender: TOLMAR
  Company Number: CA-TOLMAR, INC.-24CA051928

PATIENT
  Age: 75 Year
  Sex: Male

DRUGS (3)
  1. ELIGARD [Suspect]
     Active Substance: LEUPROLIDE ACETATE
     Indication: Prostate cancer
     Dosage: 45 MILLIGRAM, Q 6 MONTH
     Route: 058
     Dates: start: 20240814
  2. ELIGARD [Suspect]
     Active Substance: LEUPROLIDE ACETATE
     Dosage: 45 MILLIGRAM, Q 6 MONTH
     Route: 058
     Dates: start: 20250212
  3. ELIGARD [Suspect]
     Active Substance: LEUPROLIDE ACETATE
     Indication: Prostate cancer

REACTIONS (7)
  - Diabetes mellitus [Unknown]
  - Injection site warmth [Unknown]
  - Herpes zoster [Unknown]
  - Intentional product use issue [Recovered/Resolved]
  - Injection site mass [Recovering/Resolving]
  - Injection site pain [Recovered/Resolved]
  - Hot flush [Unknown]

NARRATIVE: CASE EVENT DATE: 20240801
